FAERS Safety Report 14236052 (Version 3)
Quarter: 2019Q2

REPORT INFORMATION
  Report Type: Report from Study
  Country: CA (occurrence: CA)
  Receive Date: 20171129
  Receipt Date: 20190402
  Transmission Date: 20190711
  Serious: Yes (Hospitalization)
  Sender: FDA-Public Use
  Company Number: CA-TAKEDA-2017TUS018228

PATIENT
  Age: 35 Year
  Sex: Female

DRUGS (4)
  1. VEDOLIZUMAB [Suspect]
     Active Substance: VEDOLIZUMAB
     Indication: CROHN^S DISEASE
     Dosage: 300 MILLIGRAM
     Route: 042
     Dates: start: 20161215, end: 20170829
  2. VEDOLIZUMAB [Suspect]
     Active Substance: VEDOLIZUMAB
     Dosage: 300 MILLIGRAM
     Route: 042
  3. VEDOLIZUMAB [Suspect]
     Active Substance: VEDOLIZUMAB
     Indication: COLITIS ULCERATIVE
     Dosage: 300 MILLIGRAM
     Route: 042
     Dates: start: 20161215, end: 20170829
  4. ENTOCORT [Concomitant]
     Active Substance: BUDESONIDE
     Dosage: UNK

REACTIONS (14)
  - Post procedural complication [Not Recovered/Not Resolved]
  - Hypophagia [Unknown]
  - Surgery [Unknown]
  - Weight decreased [Unknown]
  - Frequent bowel movements [Unknown]
  - Mucous stools [Unknown]
  - Pallor [Recovered/Resolved]
  - Diarrhoea [Unknown]
  - Rectal haemorrhage [Unknown]
  - Small intestinal resection [Unknown]
  - Dehydration [Unknown]
  - Syncope [Recovered/Resolved]
  - Asthenia [Unknown]
  - Nausea [Unknown]

NARRATIVE: CASE EVENT DATE: 2017
